FAERS Safety Report 7372885-0 (Version None)
Quarter: 2011Q1

REPORT INFORMATION
  Report Type: 
  Country: None (occurrence: None)
  Receive Date: 20110324
  Receipt Date: 20110321
  Transmission Date: 20110831
  Serious: Yes (Other)
  Sender: FDA-Public Use
  Company Number: GB-PFIZER INC-2011062477

PATIENT
  Age: 42 Year
  Sex: Male

DRUGS (1)
  1. CHAMPIX [Suspect]
     Dosage: UNK
     Route: 048
     Dates: start: 20110101, end: 20110223

REACTIONS (4)
  - ANXIETY [None]
  - DEPRESSED MOOD [None]
  - MENTAL DISORDER [None]
  - PARANOIA [None]
